FAERS Safety Report 9687268 (Version 1)
Quarter: 2013Q4

REPORT INFORMATION
  Report Type: Not Available
  Country: US (occurrence: US)
  Receive Date: 20131114
  Receipt Date: 20131114
  Transmission Date: 20140711
  Serious: Yes (Other)
  Sender: FDA-Public Use
  Company Number: US-LUPIN PHARMACEUTICALS INC.-E2B_00001419

PATIENT
  Age: 53 Year
  Sex: Male
  Weight: 72.64 kg

DRUGS (3)
  1. LEVETIRACETAM TABLETS 1000MG [Suspect]
     Indication: CONVULSION
  2. LEVETIRACETAM TABLETS 1000MG [Suspect]
     Dates: start: 201310
  3. PHENOBARBITAL [Concomitant]
     Indication: CONVULSION

REACTIONS (3)
  - Hypoaesthesia [Not Recovered/Not Resolved]
  - Convulsion [Not Recovered/Not Resolved]
  - Drug ineffective [Not Recovered/Not Resolved]
